FAERS Safety Report 5213829-7 (Version None)
Quarter: 2007Q1

REPORT INFORMATION
  Report Type: 
  Country: None (occurrence: None)
  Receive Date: 20070119
  Receipt Date: 20070110
  Transmission Date: 20070707
  Serious: Yes (Hospitalization, Other)
  Sender: FDA-Public Use
  Company Number: US-PFIZER INC-2005003617

PATIENT
  Sex: Male

DRUGS (6)
  1. GABAPENTIN [Suspect]
     Indication: ANXIETY
     Route: 048
  2. GABAPENTIN [Suspect]
     Indication: DEPRESSION
  3. ATIVAN [Concomitant]
     Route: 048
  4. CELEXA [Concomitant]
     Route: 048
  5. AMBIEN [Concomitant]
  6. TEGRETOL [Concomitant]

REACTIONS (7)
  - ALCOHOLISM [None]
  - DRUG INEFFECTIVE [None]
  - GUN SHOT WOUND [None]
  - HAEMOTHORAX [None]
  - LUNG INJURY [None]
  - SUBSTANCE ABUSE [None]
  - SUICIDE ATTEMPT [None]
